FAERS Safety Report 5059158-6 (Version None)
Quarter: 2006Q3

REPORT INFORMATION
  Report Type: 
  Country: None (occurrence: None)
  Receive Date: 20060718
  Receipt Date: 20060712
  Transmission Date: 20061208
  Serious: Yes (Other)
  Sender: FDA-Public Use
  Company Number: 2006086242

PATIENT
  Age: 39 Year
  Sex: Female
  Weight: 103.4201 kg

DRUGS (2)
  1. ROGAINE [Suspect]
     Indication: ALOPECIA
     Dosage: 1 ML TWICE DAILY TOPICAL
     Route: 061
     Dates: start: 20060606, end: 20060705
  2. MONTELEUKAST SODIUM(MONTELEUKAST SODIUM) [Concomitant]

REACTIONS (4)
  - DRUG HYPERSENSITIVITY [None]
  - PRURITUS [None]
  - RASH [None]
  - SWELLING [None]
